FAERS Safety Report 7620962-9 (Version None)
Quarter: 2011Q3

REPORT INFORMATION
  Report Type: 
  Country: None (occurrence: None)
  Receive Date: 20110719
  Receipt Date: 20110713
  Transmission Date: 20111222
  Serious: Yes (Life-Threatening, Hospitalization, Disabling)
  Sender: FDA-Public Use
  Company Number: GB-MERCK-1107GBR00063

PATIENT
  Age: 80 Year
  Sex: Female
  Weight: 77 kg

DRUGS (5)
  1. TERBUTALINE SULFATE [Concomitant]
     Indication: ASTHMA
     Route: 055
     Dates: start: 20040828, end: 20110204
  2. CALCIUM CARBONATE AND CHOLECALCIFEROL [Concomitant]
     Indication: OSTEOPOROSIS
     Route: 048
     Dates: start: 20100215, end: 20110204
  3. ASPIRIN [Concomitant]
     Indication: CEREBROVASCULAR ACCIDENT
     Route: 048
     Dates: start: 20050518, end: 20110204
  4. QUININE [Concomitant]
     Indication: MUSCLE SPASMS
     Route: 048
     Dates: start: 20060904, end: 20110204
  5. FOSAMAX [Suspect]
     Indication: OSTEOPOROSIS
     Route: 048
     Dates: start: 20031024, end: 20110204

REACTIONS (1)
  - OESOPHAGEAL RUPTURE [None]
